FAERS Safety Report 16802278 (Version 2)
Quarter: 2019Q3

REPORT INFORMATION
  Report Type: Spontaneous
  Country: PT (occurrence: PT)
  Receive Date: 20190912
  Receipt Date: 20190916
  Transmission Date: 20191005
  Serious: Yes (Hospitalization, Other)
  Sender: FDA-Public Use
  Company Number: PHHY2019PT210897

PATIENT
  Age: 19 Year
  Sex: Male

DRUGS (2)
  1. CHLORPROMAZINE. [Suspect]
     Active Substance: CHLORPROMAZINE
     Indication: INSOMNIA
     Dosage: UNK
     Route: 065
  2. IBUPROFEN. [Suspect]
     Active Substance: IBUPROFEN
     Indication: COUGH
     Dosage: UNK
     Route: 065

REACTIONS (12)
  - Pruritus [Unknown]
  - Deficiency of bile secretion [Unknown]
  - Choluria [Unknown]
  - Asthenia [Unknown]
  - Bilirubin conjugated increased [Unknown]
  - Anuria [Unknown]
  - Cough [Unknown]
  - Product use in unapproved indication [Unknown]
  - Intentional product misuse [Unknown]
  - Jaundice [Unknown]
  - Drug-induced liver injury [Unknown]
  - Blood bilirubin increased [Recovering/Resolving]
